FAERS Safety Report 4444326-4 (Version None)
Quarter: 2004Q3

REPORT INFORMATION
  Report Type: 
  Country: None (occurrence: None)
  Receive Date: 20040729
  Receipt Date: 20031201
  Transmission Date: 20050211
  Serious: Yes (Death)
  Sender: FDA-Public Use
  Company Number: USA-2003-0011729

PATIENT
  Age: 51 Year
  Sex: Male
  Weight: 104.3 kg

DRUGS (10)
  1. MORPHINE SULFATE [Suspect]
  2. ALPRAZOLAM [Suspect]
  3. CITALOPRAM [Suspect]
  4. CYCLOBENZAPRINE HCL [Suspect]
  5. DIAZEPAM [Suspect]
  6. DIPHENHYDRAMINE HCL [Suspect]
  7. DOXEPIN (DOXEPIN) [Suspect]
  8. OXAZEPAM [Suspect]
  9. MIRTAZAPINE [Suspect]
  10. ETHANOL (ETHANOL) [Suspect]

REACTIONS (2)
  - ACCIDENTAL OVERDOSE [None]
  - MULTIPLE DRUG OVERDOSE [None]
